FAERS Safety Report 5758894-3 (Version None)
Quarter: 2008Q2

REPORT INFORMATION
  Report Type: 
  Country: None (occurrence: None)
  Receive Date: 20080604
  Receipt Date: 20080529
  Transmission Date: 20081010
  Serious: Yes (Death, Hospitalization)
  Sender: FDA-Public Use
  Company Number: PHBS2007JP10822

PATIENT
  Age: 40 Year
  Sex: Female

DRUGS (3)
  1. TOFRANIL [Suspect]
     Indication: DEPRESSION
     Dosage: UNK, UNK
     Route: 048
     Dates: start: 20070626
  2. TOFRANIL [Suspect]
     Indication: SUICIDE ATTEMPT
  3. TOFRANIL [Suspect]
     Indication: BORDERLINE PERSONALITY DISORDER

REACTIONS (14)
  - BLOOD PRESSURE DECREASED [None]
  - CARDIAC ARREST [None]
  - CARDIO-RESPIRATORY ARREST [None]
  - CLONIC CONVULSION [None]
  - DRUG LEVEL INCREASED [None]
  - ELECTROCARDIOGRAM ABNORMAL [None]
  - ELECTROCARDIOGRAM QRS COMPLEX PROLONGED [None]
  - ELECTROMECHANICAL DISSOCIATION [None]
  - HEART RATE DECREASED [None]
  - INTENTIONAL OVERDOSE [None]
  - LIFE SUPPORT [None]
  - LOSS OF CONSCIOUSNESS [None]
  - SHOCK [None]
  - SUICIDE ATTEMPT [None]
